FAERS Safety Report 22045438 (Version 1)
Quarter: 2023Q1

REPORT INFORMATION
  Report Type: Spontaneous
  Country: US (occurrence: US)
  Receive Date: 20230228
  Receipt Date: 20230228
  Transmission Date: 20230418
  Serious: Yes (Hospitalization, Other)
  Sender: FDA-Public Use
  Company Number: US-APOTEX-2023AP004007

PATIENT
  Age: 68 Year
  Sex: Male

DRUGS (2)
  1. SOTALOL [Suspect]
     Active Substance: SOTALOL
     Indication: Atrial fibrillation
     Dosage: 80 MILLIGRAM, BID
     Route: 065
     Dates: start: 20210830, end: 20210917
  2. RIVAROXABAN [Suspect]
     Active Substance: RIVAROXABAN
     Indication: Atrial fibrillation
     Dosage: UNK
     Route: 065

REACTIONS (2)
  - Henoch-Schonlein purpura [Recovering/Resolving]
  - IgA nephropathy [Recovering/Resolving]

NARRATIVE: CASE EVENT DATE: 20210101
